FAERS Safety Report 8964270 (Version 1)
Quarter: 2012Q4

REPORT INFORMATION
  Report Type: 
  Country: US (occurrence: US)
  Receive Date: 20121214
  Receipt Date: 20121214
  Transmission Date: 20130627
  Serious: Yes (Other)
  Sender: FDA-Public Use
  Company Number: US-JNJFOC-20121202782

PATIENT
  Sex: Female

DRUGS (1)
  1. REMICADE [Suspect]
     Indication: CROHN^S DISEASE
     Route: 042

REACTIONS (4)
  - Mycobacterium tuberculosis complex test positive [Unknown]
  - Histoplasmosis [Unknown]
  - Cytomegalovirus infection [Not Recovered/Not Resolved]
  - Crohn^s disease [Not Recovered/Not Resolved]
